FAERS Safety Report 21866733 (Version 1)
Quarter: 2023Q1

REPORT INFORMATION
  Report Type: Report from Study
  Country: US (occurrence: US)
  Receive Date: 20230116
  Receipt Date: 20230116
  Transmission Date: 20230418
  Serious: No
  Sender: FDA-Public Use
  Company Number: US-ABBVIE-4241473

PATIENT
  Age: 49 Year
  Sex: Female

DRUGS (2)
  1. HUMIRA [Suspect]
     Active Substance: ADALIMUMAB
     Indication: Rheumatoid arthritis
     Dosage: CITRATE FREE
     Route: 058
     Dates: start: 20201103
  2. RINVOQ [Suspect]
     Active Substance: UPADACITINIB
     Indication: Rheumatoid arthritis
     Dosage: RINVOQ DISCONTINUED IN 2020
     Route: 048
     Dates: start: 20200917

REACTIONS (3)
  - Drug ineffective [Not Recovered/Not Resolved]
  - Injection site urticaria [Unknown]
  - Adverse reaction [Unknown]

NARRATIVE: CASE EVENT DATE: 20221117
